FAERS Safety Report 6241645-6 (Version None)
Quarter: 2009Q2

REPORT INFORMATION
  Report Type: 
  Country: None (occurrence: None)
  Receive Date: 20090623
  Receipt Date: 20081027
  Transmission Date: 20091009
  Serious: Yes (Death)
  Sender: FDA-Public Use
  Company Number: BR-ROCHE-574215

PATIENT
  Sex: Female

DRUGS (50)
  1. MYCOPHENOLATE MOFETIL [Suspect]
     Route: 048
     Dates: start: 20030429
  2. MYCOPHENOLATE MOFETIL [Suspect]
     Route: 048
     Dates: start: 20030710
  3. MYCOPHENOLATE MOFETIL [Suspect]
     Route: 048
     Dates: start: 20030711
  4. CYCLOSPORINE [Suspect]
     Route: 048
     Dates: start: 20030429, end: 20030501
  5. CYCLOSPORINE [Suspect]
     Route: 048
     Dates: start: 20030502
  6. CYCLOSPORINE [Suspect]
     Route: 048
     Dates: start: 20030503, end: 20030509
  7. CYCLOSPORINE [Suspect]
     Route: 048
     Dates: start: 20030510
  8. CYCLOSPORINE [Suspect]
     Route: 048
     Dates: start: 20030511
  9. CYCLOSPORINE [Suspect]
     Route: 048
     Dates: start: 20030512
  10. CYCLOSPORINE [Suspect]
     Route: 048
     Dates: start: 20030513, end: 20030525
  11. CYCLOSPORINE [Suspect]
     Route: 048
     Dates: start: 20030526
  12. CYCLOSPORINE [Suspect]
     Route: 048
     Dates: start: 20030527, end: 20030814
  13. CYCLOSPORINE [Suspect]
     Route: 048
     Dates: start: 20030815
  14. CYCLOSPORINE [Suspect]
     Route: 048
     Dates: start: 20041221
  15. PREDNISONE [Suspect]
     Route: 048
     Dates: start: 20030429, end: 20030526
  16. PREDNISONE [Suspect]
     Route: 048
     Dates: start: 20030527, end: 20030623
  17. PREDNISONE [Suspect]
     Route: 048
     Dates: start: 20030624, end: 20030710
  18. PREDNISONE [Suspect]
     Route: 048
     Dates: start: 20030711, end: 20030724
  19. PREDNISONE [Suspect]
     Route: 048
     Dates: start: 20030725
  20. PREDNISONE [Suspect]
     Route: 048
     Dates: start: 20030731
  21. PREDNISONE [Suspect]
     Route: 048
     Dates: start: 20030805
  22. METHYLPREDNISOLONE [Suspect]
     Route: 042
     Dates: start: 20030428
  23. BACTRIM [Concomitant]
     Route: 048
     Dates: start: 20030429, end: 20050417
  24. RANITIDINE [Concomitant]
     Route: 048
     Dates: start: 20030428, end: 20050417
  25. PROPRANOLOL HYDROCHLORIDE [Concomitant]
     Route: 048
     Dates: start: 20030428
  26. PROPRANOLOL HYDROCHLORIDE [Concomitant]
     Route: 048
     Dates: start: 20030428
  27. PROPRANOLOL HYDROCHLORIDE [Concomitant]
     Route: 048
     Dates: start: 20030504
  28. PROPRANOLOL HYDROCHLORIDE [Concomitant]
     Route: 048
     Dates: start: 20030505
  29. PROPRANOLOL HYDROCHLORIDE [Concomitant]
     Route: 048
     Dates: start: 20030508
  30. PROPRANOLOL HYDROCHLORIDE [Concomitant]
     Route: 048
     Dates: start: 20030513
  31. PROPRANOLOL HYDROCHLORIDE [Concomitant]
     Route: 048
     Dates: start: 20030523
  32. PROPRANOLOL HYDROCHLORIDE [Concomitant]
     Route: 048
     Dates: start: 20030905
  33. PROPRANOLOL HYDROCHLORIDE [Concomitant]
     Route: 048
     Dates: start: 20040123
  34. PROPRANOLOL HYDROCHLORIDE [Concomitant]
     Route: 048
     Dates: start: 20040430
  35. PROPRANOLOL HYDROCHLORIDE [Concomitant]
     Route: 048
     Dates: start: 20040820, end: 20041221
  36. CHLORTHALIDONE [Concomitant]
     Route: 048
     Dates: start: 20030504
  37. CHLORTHALIDONE [Concomitant]
     Route: 048
     Dates: start: 20040430
  38. CHLORTHALIDONE [Concomitant]
     Route: 048
     Dates: start: 20040723, end: 20041126
  39. ACETYLSALICYLIC ACID [Concomitant]
     Route: 048
     Dates: start: 20030522, end: 20050417
  40. CAPTOPRIL [Concomitant]
     Route: 048
     Dates: start: 20020901, end: 20050417
  41. IBERIN FOLICO [Concomitant]
     Route: 048
     Dates: start: 20030807, end: 20050417
  42. AMLODIPINE [Concomitant]
     Dates: start: 20041221
  43. GANCICLOVIR [Concomitant]
     Route: 042
     Dates: start: 20030731
  44. GANCICLOVIR [Concomitant]
     Route: 042
     Dates: start: 20030801
  45. GANCICLOVIR [Concomitant]
     Route: 042
     Dates: start: 20030808
  46. GANCICLOVIR [Concomitant]
     Route: 042
     Dates: start: 20030811, end: 20030815
  47. NIFEDINE [Concomitant]
     Route: 048
     Dates: start: 20030427
  48. CEPHALEXIN [Concomitant]
     Dates: start: 20030429, end: 20030501
  49. CEPHALOTIN [Concomitant]
     Dates: start: 20030428
  50. CEPHALOTIN [Concomitant]
     Dates: start: 20030429, end: 20030430

REACTIONS (1)
  - SEPSIS [None]
